FAERS Safety Report 11294120 (Version 3)
Quarter: 2015Q3

REPORT INFORMATION
  Report Type: Spontaneous
  Country: US (occurrence: US)
  Receive Date: 20150722
  Receipt Date: 20150805
  Transmission Date: 20151125
  Serious: Yes (Other)
  Sender: FDA-Public Use
  Company Number: US-ABBVIE-15P-163-1426964-00

PATIENT
  Sex: Female
  Weight: 72.19 kg

DRUGS (16)
  1. SYNTHROID [Suspect]
     Active Substance: LEVOTHYROXINE SODIUM
     Indication: BASEDOW^S DISEASE
     Route: 048
     Dates: start: 1983, end: 1985
  2. XANAX [Concomitant]
     Active Substance: ALPRAZOLAM
     Indication: NERVOUSNESS
     Route: 065
  3. GLUCOPHAGE [Concomitant]
     Active Substance: METFORMIN HYDROCHLORIDE
     Indication: PRODUCT USED FOR UNKNOWN INDICATION
     Route: 065
  4. SYNTHROID [Suspect]
     Active Substance: LEVOTHYROXINE SODIUM
     Indication: BASEDOW^S DISEASE
     Route: 048
     Dates: start: 1985
  5. LIDODERM [Concomitant]
     Active Substance: LIDOCAINE
     Indication: BACK PAIN
     Route: 065
  6. PERCOCET [Concomitant]
     Active Substance: ACETAMINOPHEN\OXYCODONE HYDROCHLORIDE
     Indication: PAIN
     Route: 065
  7. DECADRON [Concomitant]
     Active Substance: DEXAMETHASONE
     Indication: INFLAMMATION
     Route: 065
  8. LINZESS [Concomitant]
     Active Substance: LINACLOTIDE
     Indication: GASTRITIS
     Route: 065
  9. BETAXOLOL. [Concomitant]
     Active Substance: BETAXOLOL
     Indication: HEART RATE INCREASED
  10. VISTARIL [Concomitant]
     Active Substance: HYDROXYZINE PAMOATE
     Indication: INSOMNIA
  11. CATAPRES [Concomitant]
     Active Substance: CLONIDINE HYDROCHLORIDE
     Indication: HYPERTENSIVE CRISIS
     Dosage: PRN
     Route: 065
  12. LEVSIN [Concomitant]
     Active Substance: HYOSCYAMINE SULFATE
     Indication: AUTONOMIC NERVOUS SYSTEM IMBALANCE
     Route: 065
  13. TAXOL [Concomitant]
     Active Substance: PACLITAXEL
     Indication: PRODUCT USED FOR UNKNOWN INDICATION
     Dosage: PRN PULSE GREATER THAN 125
     Route: 065
  14. PROGESTERONE. [Concomitant]
     Active Substance: PROGESTERONE
     Indication: HORMONE REPLACEMENT THERAPY
     Route: 065
  15. RESTORIL [Concomitant]
     Active Substance: TEMAZEPAM
     Indication: PRODUCT USED FOR UNKNOWN INDICATION
     Route: 065
  16. XANAX [Concomitant]
     Active Substance: ALPRAZOLAM
     Indication: PSYCHOMOTOR HYPERACTIVITY

REACTIONS (38)
  - Central nervous system lesion [Unknown]
  - Incorrect product storage [Unknown]
  - Gastritis [Unknown]
  - Autonomic nervous system imbalance [Unknown]
  - Hypertensive crisis [Unknown]
  - Intervertebral disc protrusion [Not Recovered/Not Resolved]
  - Hypothyroidism [Not Recovered/Not Resolved]
  - Weight increased [Not Recovered/Not Resolved]
  - Hypertension [Unknown]
  - White blood cell count increased [Unknown]
  - Autonomic dysreflexia [Unknown]
  - Mean cell haemoglobin increased [Unknown]
  - Blood testosterone decreased [Unknown]
  - Asthenia [Unknown]
  - Malabsorption [Unknown]
  - Vasospasm [Unknown]
  - Oedema [Unknown]
  - Hyperadrenalism [Unknown]
  - Intervertebral disc annular tear [Not Recovered/Not Resolved]
  - Hypoacusis [Unknown]
  - Vitamin D increased [Unknown]
  - Mean cell volume increased [Unknown]
  - Monocyte count increased [Unknown]
  - Progesterone decreased [Unknown]
  - Oedema [Unknown]
  - Central nervous system lesion [Unknown]
  - Cerebral ischaemia [Unknown]
  - Polyglandular autoimmune syndrome type I [Not Recovered/Not Resolved]
  - Adrenal neoplasm [Unknown]
  - Alanine aminotransferase increased [Unknown]
  - Blood glucose fluctuation [Unknown]
  - Product quality issue [Unknown]
  - Visual acuity reduced [Unknown]
  - Blood calcium increased [Unknown]
  - Haematocrit increased [Unknown]
  - Nervous system disorder [Unknown]
  - Drug ineffective [Not Recovered/Not Resolved]
  - Blood cortisol increased [Unknown]

NARRATIVE: CASE EVENT DATE: 2010
